FAERS Safety Report 4688788-6 (Version None)
Quarter: 2005Q2

REPORT INFORMATION
  Report Type: 
  Country: None (occurrence: None)
  Receive Date: 20050610
  Receipt Date: 20050610
  Transmission Date: 20051028
  Serious: Yes (Hospitalization)
  Sender: FDA-Public Use
  Company Number: None

PATIENT
  Sex: Male
  Weight: 86.637 kg

DRUGS (4)
  1. SERTRALINE 100 MG [Suspect]
     Indication: AGGRESSION
     Dosage: 100 MG BID PO
     Route: 048
     Dates: start: 19960101
  2. RISPERIDONE [Suspect]
     Dosage: 2MG BID PO
     Route: 048
     Dates: start: 20031031
  3. BUSPIRONE HCL [Concomitant]
  4. MULTIVI W/ MINERALS [Concomitant]

REACTIONS (3)
  - BLOOD SODIUM DECREASED [None]
  - CONVULSION [None]
  - WHITE BLOOD CELL COUNT INCREASED [None]
